FAERS Safety Report 14997618 (Version 4)
Quarter: 2019Q2

REPORT INFORMATION
  Report Type: Report from Study
  Country: GB (occurrence: GB)
  Receive Date: 20180611
  Receipt Date: 20190403
  Transmission Date: 20190711
  Serious: Yes (Hospitalization)
  Sender: FDA-Public Use
  Company Number: GB-TAKEDA-2018MPI004477

PATIENT
  Age: 71 Year
  Sex: Female

DRUGS (5)
  1. DEXAMETHASONE. [Suspect]
     Active Substance: DEXAMETHASONE
     Indication: PRODUCT USED FOR UNKNOWN INDICATION
     Dosage: 10 MG, UNK
     Route: 065
  2. DIGOXIN. [Suspect]
     Active Substance: DIGOXIN
     Indication: PRODUCT USED FOR UNKNOWN INDICATION
     Dosage: UNK
     Route: 065
  3. LENALIDOMIDE [Concomitant]
     Active Substance: LENALIDOMIDE
     Dosage: 15 MG, UNK
     Route: 065
  4. IXAZOMIB [Suspect]
     Active Substance: IXAZOMIB
     Indication: PLASMA CELL MYELOMA
     Dosage: 4 MG, UNK
     Route: 048
  5. LENALIDOMIDE [Concomitant]
     Active Substance: LENALIDOMIDE
     Dosage: 10 MG, UNK
     Route: 065

REACTIONS (24)
  - Urinary tract infection [Unknown]
  - Body temperature increased [Unknown]
  - Rash papular [Recovering/Resolving]
  - Cataract [Unknown]
  - Bone pain [Unknown]
  - Weight decreased [Unknown]
  - Peripheral swelling [Unknown]
  - Off label use [Unknown]
  - Platelet count decreased [Unknown]
  - Micturition frequency decreased [Unknown]
  - Escherichia infection [Unknown]
  - Joint swelling [Unknown]
  - Monoclonal immunoglobulin present [Unknown]
  - Confusional state [Unknown]
  - Neutropenia [Unknown]
  - Lower respiratory tract infection [Unknown]
  - Skin lesion [Unknown]
  - Diarrhoea [Unknown]
  - Asthenopia [Unknown]
  - Chest pain [Unknown]
  - Nasopharyngitis [Unknown]
  - Pyrexia [Unknown]
  - Blood calcium increased [Unknown]
  - Blood creatine increased [Unknown]
